FAERS Safety Report 7270932-8 (Version None)
Quarter: 2011Q1

REPORT INFORMATION
  Report Type: 
  Country: None (occurrence: None)
  Receive Date: 20110202
  Receipt Date: 20110118
  Transmission Date: 20110831
  Serious: Yes (Hospitalization)
  Sender: FDA-Public Use
  Company Number: PL-CELGENEUS-129-21880-11011736

PATIENT
  Sex: Male

DRUGS (2)
  1. REVLIMID [Suspect]
     Indication: MULTIPLE MYELOMA
     Route: 048
     Dates: start: 20101119, end: 20101202
  2. DEXAMETHASONE [Concomitant]
     Route: 065

REACTIONS (6)
  - OEDEMA PERIPHERAL [None]
  - PNEUMONIA [None]
  - VOMITING [None]
  - NAUSEA [None]
  - BLOOD CREATININE INCREASED [None]
  - DEAFNESS [None]
